FAERS Safety Report 6282224-4 (Version None)
Quarter: 2009Q3

REPORT INFORMATION
  Report Type: 
  Country: None (occurrence: None)
  Receive Date: 20090724
  Receipt Date: 20090713
  Transmission Date: 20100115
  Serious: Yes (Other)
  Sender: FDA-Public Use
  Company Number: GB-JNJFOC-20090604955

PATIENT
  Sex: Male

DRUGS (6)
  1. REMICADE [Suspect]
     Indication: CROHN'S DISEASE
     Dosage: RECEIVED 9-10 INFUSIONS
     Route: 042
  2. AZATHIOPRINE [Concomitant]
     Indication: CROHN'S DISEASE
  3. PREDNISONE TAB [Concomitant]
     Indication: CROHN'S DISEASE
  4. RISEDRONATE SODIUM [Concomitant]
     Indication: OSTEOPOROSIS
  5. SIMVASTATIN [Concomitant]
     Indication: BLOOD CHOLESTEROL INCREASED
  6. SALAZOPYRIN [Concomitant]
     Indication: INFLAMMATORY BOWEL DISEASE
     Dosage: SINCE 1980'S

REACTIONS (1)
  - DIFFUSE LARGE B-CELL LYMPHOMA [None]
